FAERS Safety Report 7500225-2 (Version None)
Quarter: 2011Q2

REPORT INFORMATION
  Report Type: 
  Country: None (occurrence: None)
  Receive Date: 20110524
  Receipt Date: 20110510
  Transmission Date: 20111010
  Serious: Yes (Other)
  Sender: FDA-Public Use
  Company Number: IE-JNJFOC-20110504874

PATIENT
  Sex: Female

DRUGS (1)
  1. REMICADE [Suspect]
     Indication: ACCIDENTAL EXPOSURE
     Route: 042
     Dates: start: 20110406

REACTIONS (4)
  - EYE PAIN [None]
  - LACRIMATION INCREASED [None]
  - ACCIDENTAL EXPOSURE [None]
  - OCULAR HYPERAEMIA [None]
